FAERS Safety Report 4642905-2 (Version None)
Quarter: 2005Q2

REPORT INFORMATION
  Report Type: 
  Country: None (occurrence: None)
  Receive Date: 20050421
  Receipt Date: 20050413
  Transmission Date: 20051028
  Serious: Yes (Hospitalization)
  Sender: FDA-Public Use
  Company Number: HQWYE017614APR05

PATIENT
  Age: 64 Year
  Sex: Male

DRUGS (6)
  1. EUPANTOL (PANTOPRAZOLE, TABLET, DELAYED RELEASE) [Suspect]
     Indication: BACK PAIN
     Dosage: 40 MG 1X PER 1 DAY
     Route: 048
     Dates: start: 20050114, end: 20050124
  2. NEXEN (NIMESULIDE, ) [Concomitant]
     Indication: BACK PAIN
     Dosage: 100 MG ^SOME (S) SOME DF^
     Route: 048
     Dates: start: 20050114, end: 20050124
  3. THIOCOLCHICOSIDE (THIOCOLCHICOSIDE, ) [Suspect]
     Indication: BACK PAIN
     Dosage: ^SOME TIME(S) SOME DF^
     Route: 048
     Dates: start: 20050114, end: 20050124
  4. ZAMADOL (TRAMADOL, ) [Suspect]
     Indication: BACK PAIN
     Dosage: ^SOME TIME(S)  SOME ^DF^
     Route: 048
     Dates: start: 20050114, end: 20050124
  5. AMLOR (AMLODIPINE BESILATE) [Concomitant]
  6. FRACTAL (FLUVASTATIN) [Concomitant]

REACTIONS (6)
  - BLOOD IMMUNOGLOBULIN E INCREASED [None]
  - DERMATITIS BULLOUS [None]
  - DRUG EFFECT DECREASED [None]
  - PEMPHIGOID [None]
  - PRURIGO [None]
  - PRURITUS [None]
